FAERS Safety Report 7229106-9 (Version None)
Quarter: 2011Q1

REPORT INFORMATION
  Report Type: 
  Country: None (occurrence: None)
  Receive Date: 20110117
  Receipt Date: 20110111
  Transmission Date: 20110831
  Serious: Yes (Hospitalization)
  Sender: FDA-Public Use
  Company Number: FR-JNJFOC-20101206125

PATIENT
  Age: 51 Year
  Sex: Female

DRUGS (11)
  1. ACTISKENAN [Concomitant]
     Route: 048
  2. STILNOX [Concomitant]
     Route: 065
  3. CLAFORAN [Suspect]
     Indication: LUNG DISORDER
     Route: 042
  4. EFFEXOR [Concomitant]
     Route: 048
  5. MORPHINE SULFATE [Concomitant]
     Route: 048
  6. XYZAL [Concomitant]
     Route: 065
  7. TAVANIC [Suspect]
     Indication: PNEUMONIA
     Route: 048
  8. SEGLOR [Concomitant]
     Route: 048
  9. LYSANXIA [Concomitant]
     Route: 048
  10. TAVANIC [Suspect]
     Route: 042
  11. LOVENOX [Concomitant]
     Route: 058

REACTIONS (5)
  - MUSCLE DISORDER [None]
  - QUADRIPLEGIA [None]
  - RASH [None]
  - RHABDOMYOLYSIS [None]
  - MONOPLEGIA [None]
